FAERS Safety Report 5393054-X (Version None)
Quarter: 2007Q3

REPORT INFORMATION
  Report Type: 
  Country: None (occurrence: None)
  Receive Date: 20070719
  Receipt Date: 20070703
  Transmission Date: 20080115
  Serious: Yes (Hospitalization)
  Sender: FDA-Public Use
  Company Number: 8024084

PATIENT
  Age: 40 Year
  Sex: Male
  Weight: 65 kg

DRUGS (5)
  1. KEPPRA [Suspect]
     Indication: EPILEPSY
     Dosage: 500 MG 2/D PO
     Route: 048
     Dates: start: 20060401
  2. PEGASYS [Suspect]
     Indication: HEPATITIS C
     Dosage: 180 UG/KG 1/W SC
     Route: 058
     Dates: start: 20060520, end: 20070511
  3. COPEGUS [Suspect]
     Indication: HEPATITIS C
     Dosage: 1000 MG/D PO
     Route: 048
     Dates: start: 20060520, end: 20070511
  4. DEPAKENE [Concomitant]
  5. ARANESP [Concomitant]

REACTIONS (2)
  - HEPATIC CIRRHOSIS [None]
  - MYELODYSPLASTIC SYNDROME [None]
